FAERS Safety Report 5580901-1 (Version None)
Quarter: 2008Q1

REPORT INFORMATION
  Report Type: 
  Country: None (occurrence: None)
  Receive Date: 20080103
  Receipt Date: 20071220
  Transmission Date: 20080703
  Serious: Yes (Hospitalization)
  Sender: FDA-Public Use
  Company Number: NO-AMGEN-US257920

PATIENT
  Sex: Male

DRUGS (2)
  1. ENBREL [Suspect]
     Indication: DRUG USE FOR UNKNOWN INDICATION
     Route: 058
     Dates: start: 20070801
  2. NAPREN [Concomitant]
     Indication: PAIN
     Dosage: 500MG, ONLY WHEN NEEDED

REACTIONS (2)
  - INJECTION SITE REACTION [None]
  - PERIPHERAL EMBOLISM [None]
